FAERS Safety Report 23540114 (Version 1)
Quarter: 2024Q1

REPORT INFORMATION
  Report Type: Spontaneous
  Country: RU (occurrence: RU)
  Receive Date: 20240219
  Receipt Date: 20240219
  Transmission Date: 20240410
  Serious: Yes (Death)
  Sender: FDA-Public Use
  Company Number: RU-BAYER-2024A026264

PATIENT
  Age: 54 Year
  Sex: Male

DRUGS (3)
  1. ULTRAVIST [Suspect]
     Active Substance: IOPROMIDE
     Indication: Angiocardiogram
     Dosage: 1 DF, ONCE
     Dates: start: 20240213, end: 20240213
  2. LIDOCAINE [Concomitant]
     Active Substance: LIDOCAINE
  3. HEPARIN [Concomitant]
     Active Substance: HEPARIN SODIUM

REACTIONS (1)
  - Arterial thrombosis [Fatal]

NARRATIVE: CASE EVENT DATE: 20240213
